FAERS Safety Report 5615658-9 (Version None)
Quarter: 2008Q1

REPORT INFORMATION
  Report Type: 
  Country: None (occurrence: None)
  Receive Date: 20080206
  Receipt Date: 20080123
  Transmission Date: 20080703
  Serious: Yes (Hospitalization)
  Sender: FDA-Public Use
  Company Number: ES-AMGEN-UK258406

PATIENT
  Sex: Male

DRUGS (6)
  1. PALIFERMIN - BLINDED [Suspect]
     Indication: RADIATION DYSPHAGIA
     Route: 042
     Dates: start: 20070720, end: 20070831
  2. MORPHINE [Concomitant]
     Route: 065
     Dates: start: 20071112, end: 20071112
  3. DURAGESIC-100 [Concomitant]
     Route: 062
     Dates: start: 20071111
  4. METOCLOPRAMIDE [Concomitant]
     Route: 042
     Dates: start: 20071111, end: 20071122
  5. METHYLPREDNISOLONE [Concomitant]
     Route: 042
     Dates: start: 20071111, end: 20071231
  6. PACLITAXEL [Concomitant]
     Route: 042
     Dates: start: 20070723, end: 20070827

REACTIONS (1)
  - OESOPHAGEAL HYPOMOTILITY [None]
